FAERS Safety Report 25014214 (Version 1)
Quarter: 2025Q1

REPORT INFORMATION
  Report Type: Report from Study
  Country: EG (occurrence: EG)
  Receive Date: 20250226
  Receipt Date: 20250226
  Transmission Date: 20250409
  Serious: Yes (Death, Hospitalization, Other)
  Sender: NOVARTIS
  Company Number: EG-002147023-NVSC2025EG032333

PATIENT
  Age: 73 Year
  Sex: Female
  Weight: 75 kg

DRUGS (9)
  1. KISQALI [Suspect]
     Active Substance: RIBOCICLIB
     Indication: Breast cancer metastatic
     Dosage: 200 MG, QD (3 TABLETS ONCE DAILY FOR 21 DAYS AND ONE WEEK OFF)
     Route: 048
     Dates: start: 2019, end: 20250115
  2. ZOMETA [Suspect]
     Active Substance: ZOLEDRONIC ACID
     Indication: Breast cancer metastatic
     Route: 042
     Dates: start: 2019, end: 202412
  3. ZOMETA [Suspect]
     Active Substance: ZOLEDRONIC ACID
     Indication: Metastases to bone
  4. FASLODEX [Suspect]
     Active Substance: FULVESTRANT
     Indication: Breast cancer metastatic
     Dosage: 250 MG, QMO (2 INJS), FORMULATION- SOLUTION FOR INJECTION, STRENGTH 250 MG)
     Route: 030
  5. FASLODEX [Suspect]
     Active Substance: FULVESTRANT
     Indication: Metastases to bone
  6. FILGRASTIM [Suspect]
     Active Substance: FILGRASTIM
     Indication: Immune system disorder
     Route: 042
     Dates: start: 2019
  7. EZETIMIBE\SIMVASTATIN [Suspect]
     Active Substance: EZETIMIBE\SIMVASTATIN
     Indication: Blood cholesterol
     Dosage: 1 DOSAGE FORM, QD, (TABLET)
     Route: 048
  8. OSTEOCARE [Suspect]
     Active Substance: CALCIUM\CHOLECALCIFEROL\MAGNESIUM\ZINC
     Indication: Osteoporosis
     Dosage: UNK, QD (BUT THE PATIENT WAS NON-COMPLIANT)
     Route: 048
  9. VITAMIN D NOS [Suspect]
     Active Substance: CHOLECALCIFEROL\ERGOCALCIFEROL
     Indication: Vitamin D deficiency
     Dosage: 10000 IU INTERNATIONAL UNIT(S), QD, STRENGTH- 10,000, (BUT THE PATIENT WAS NON-COMPLIANT)
     Route: 048

REACTIONS (11)
  - Cerebral haemorrhage [Fatal]
  - Sepsis [Fatal]
  - Rectal haemorrhage [Recovered/Resolved]
  - Pulmonary oedema [Recovered/Resolved]
  - Large intestinal haemorrhage [Recovered/Resolved]
  - White blood cell count decreased [Recovered/Resolved]
  - Hemiplegia [Recovered/Resolved]
  - Anaemia [Recovered/Resolved]
  - Dysphagia [Recovered/Resolved]
  - Wrong technique in product usage process [Recovered/Resolved]
  - Incorrect route of product administration [Recovered/Resolved]

NARRATIVE: CASE EVENT DATE: 20241128
